FAERS Safety Report 4502141-7 (Version None)
Quarter: 2004Q4

REPORT INFORMATION
  Report Type: 
  Country: None (occurrence: None)
  Receive Date: 20041109
  Receipt Date: 20041021
  Transmission Date: 20050328
  Serious: Yes (Death, Hospitalization, Other)
  Sender: FDA-Public Use
  Company Number: EWC041041119

PATIENT
  Age: 70 Year
  Sex: Male
  Weight: 43 kg

DRUGS (4)
  1. GEMCITABINE HYDROCHLORIDE-IV (GEMCITABINE) [Suspect]
     Indication: LUNG NEOPLASM MALIGNANT
     Dosage: 1000 MG/2 OTHER
     Route: 050
     Dates: start: 20040129, end: 20040205
  2. CISPLATIN [Concomitant]
  3. GRANISETRON [Concomitant]
  4. DEXAMETHASONE [Concomitant]

REACTIONS (6)
  - COMA [None]
  - GRANULOCYTOPENIA [None]
  - LEUKOPENIA [None]
  - NEUTROPENIA [None]
  - SEPSIS [None]
  - THROMBOCYTOPENIA [None]
